FAERS Safety Report 7378184-5 (Version None)
Quarter: 2011Q1

REPORT INFORMATION
  Report Type: 
  Country: None (occurrence: None)
  Receive Date: 20110328
  Receipt Date: 20110321
  Transmission Date: 20110831
  Serious: Yes (Hospitalization)
  Sender: FDA-Public Use
  Company Number: A0859003A

PATIENT
  Age: 46 Year
  Sex: Male
  Weight: 57.3 kg

DRUGS (2)
  1. DILANTIN [Concomitant]
     Dosage: 100MG THREE TIMES PER DAY
  2. LAMICTAL [Suspect]
     Dosage: 100MG TWICE PER DAY
     Route: 048
     Dates: start: 20070316

REACTIONS (9)
  - MECHANICAL VENTILATION [None]
  - PNEUMONIA [None]
  - SEPSIS [None]
  - TOXIC EPIDERMAL NECROLYSIS [None]
  - GANGRENE [None]
  - RESPIRATORY FAILURE [None]
  - EMPHYSEMA [None]
  - STEVENS-JOHNSON SYNDROME [None]
  - THROMBOSIS [None]
